FAERS Safety Report 9005967 (Version 3)
Quarter: 2014Q1

REPORT INFORMATION
  Report Type: Spontaneous
  Country: US (occurrence: US)
  Receive Date: 20130110
  Receipt Date: 20140305
  Transmission Date: 20141002
  Serious: Yes (Death)
  Sender: FDA-Public Use
  Company Number: US-009507513-0812USA05174

PATIENT
  Age: 51 Year
  Sex: Male

DRUGS (10)
  1. SINGULAIR [Suspect]
     Dosage: 13 DF, UNK
     Route: 048
     Dates: end: 2007
  2. PRINIVIL [Suspect]
     Dosage: UNK
     Route: 048
     Dates: end: 2007
  3. ACETAMINOPHEN [Suspect]
     Dosage: UNK
     Route: 048
     Dates: end: 2007
  4. CLONIDINE [Suspect]
     Dosage: UNK
     Route: 048
     Dates: end: 2007
  5. ASPIRIN [Suspect]
     Dosage: UNK
     Route: 048
     Dates: end: 2007
  6. FLUOXETINE [Suspect]
     Dosage: UNK
     Route: 048
     Dates: end: 2007
  7. LAMOTRIGINE [Suspect]
     Dosage: UNK
     Route: 048
     Dates: end: 2007
  8. POTASSIUM CHLORIDE [Suspect]
     Dosage: UNK
     Route: 048
     Dates: end: 2007
  9. TRAMADOL HYDROCHLORIDE [Suspect]
     Dosage: UNK
     Route: 048
     Dates: end: 2007
  10. HYDROCHLOROTHIAZIDE [Suspect]
     Dosage: UNK
     Route: 048
     Dates: end: 2007

REACTIONS (5)
  - Completed suicide [Fatal]
  - Drug abuse [Fatal]
  - Toxicity to various agents [Fatal]
  - Overdose [Fatal]
  - Death [Fatal]
